FAERS Safety Report 4958744-9 (Version None)
Quarter: 2006Q1

REPORT INFORMATION
  Report Type: 
  Country: None (occurrence: None)
  Receive Date: 20060330
  Receipt Date: 20050414
  Transmission Date: 20060701
  Serious: Yes (Other)
  Sender: FDA-Public Use
  Company Number: US-MERCK-0504USA02814

PATIENT
  Age: 74 Year
  Sex: Female
  Weight: 64 kg

DRUGS (5)
  1. VIOXX [Suspect]
     Indication: ARTHRITIS
     Route: 048
     Dates: start: 20010101, end: 20031201
  2. ASPIRIN [Concomitant]
     Route: 065
     Dates: start: 20010101
  3. TYLENOL W/ CODEINE NO. 3 [Concomitant]
     Indication: PAIN
     Route: 065
     Dates: start: 20020111, end: 20041201
  4. PRAVACHOL [Concomitant]
     Indication: BLOOD CHOLESTEROL INCREASED
     Route: 065
     Dates: start: 20031001, end: 20031201
  5. INSULIN [Concomitant]
     Indication: DIABETES MELLITUS
     Route: 058

REACTIONS (2)
  - ABDOMINAL PAIN UPPER [None]
  - MYOCARDIAL INFARCTION [None]
